FAERS Safety Report 10086544 (Version 1)
Quarter: 2014Q2

REPORT INFORMATION
  Report Type: Spontaneous
  Country: DK (occurrence: NL)
  Receive Date: 20140418
  Receipt Date: 20140418
  Transmission Date: 20141212
  Serious: Yes (Life-Threatening)
  Sender: FDA-Public Use
  Company Number: NL-FRI-1000066610

PATIENT
  Age: 73 Year
  Sex: Female

DRUGS (7)
  1. CITALOPRAM [Suspect]
     Indication: DEPRESSION
     Dosage: 20 MG
     Route: 048
     Dates: start: 20120912
  2. HALOPERIDOL [Suspect]
     Indication: ABNORMAL BEHAVIOUR
     Route: 030
     Dates: start: 20131128, end: 20140116
  3. HALOPERIDOL [Suspect]
     Route: 030
     Dates: start: 20140117, end: 20140202
  4. DIPIPERON [Suspect]
     Indication: ABNORMAL BEHAVIOUR
     Dosage: 40 MG
     Route: 048
     Dates: start: 20120705, end: 20140123
  5. DIVISUN [Concomitant]
     Dosage: 1200 IU
     Route: 048
     Dates: start: 20131205
  6. PARACETAMOL [Concomitant]
     Dosage: 3000 MG
     Route: 048
     Dates: start: 20131105
  7. OXAZEPAM [Concomitant]
     Dosage: 10 MG
     Route: 048
     Dates: start: 20130326

REACTIONS (5)
  - Sedation [Recovered/Resolved with Sequelae]
  - Hypertonia [Recovered/Resolved with Sequelae]
  - Dehydration [Recovered/Resolved with Sequelae]
  - Drug interaction [Recovered/Resolved with Sequelae]
  - Dysphagia [Recovered/Resolved with Sequelae]
